FAERS Safety Report 23364516 (Version 4)
Quarter: 2025Q3

REPORT INFORMATION
  Report Type: Report from Study
  Country: CA (occurrence: CA)
  Receive Date: 20240104
  Receipt Date: 20250718
  Transmission Date: 20251021
  Serious: Yes (Hospitalization, Other)
  Sender: SANDOZ
  Company Number: CA-002147023-NVSC2022CA176860

PATIENT
  Age: 74 Year
  Sex: Male

DRUGS (4)
  1. HYRIMOZ [Suspect]
     Active Substance: ADALIMUMAB-ADAZ
     Dosage: 40 MG, Q2W
     Route: 058
     Dates: start: 20220707
  2. HYRIMOZ [Suspect]
     Active Substance: ADALIMUMAB-ADAZ
     Dosage: 40 MG, Q2W
     Route: 058
     Dates: start: 202405
  3. HYRIMOZ [Suspect]
     Active Substance: ADALIMUMAB-ADAZ
     Indication: Crohn^s disease
     Route: 058
     Dates: start: 20220707
  4. HYRIMOZ [Suspect]
     Active Substance: ADALIMUMAB-ADAZ
     Route: 058

REACTIONS (23)
  - Diarrhoea [Recovered/Resolved]
  - Vomiting [Recovered/Resolved]
  - Respiratory tract infection viral [Recovering/Resolving]
  - Gastroenteritis [Recovering/Resolving]
  - Abdominal pain [Recovered/Resolved]
  - Immunodeficiency [Recovering/Resolving]
  - Device related infection [Unknown]
  - Arthropathy [Unknown]
  - Diarrhoea [Recovered/Resolved]
  - Ear swelling [Recovering/Resolving]
  - Otorrhoea [Recovering/Resolving]
  - Arthropod bite [Recovering/Resolving]
  - Arthropod sting [Recovered/Resolved]
  - Fatigue [Not Recovered/Not Resolved]
  - Panic attack [Unknown]
  - Urinary incontinence [Unknown]
  - Anal incontinence [Unknown]
  - SARS-CoV-2 test positive [Recovered/Resolved]
  - Dyspnoea [Recovered/Resolved]
  - Cough [Recovered/Resolved]
  - Insomnia [Not Recovered/Not Resolved]
  - General physical health deterioration [Unknown]
  - Frequent bowel movements [Unknown]

NARRATIVE: CASE EVENT DATE: 20220804
